FAERS Safety Report 12864762 (Version 3)
Quarter: 2017Q2

REPORT INFORMATION
  Report Type: Report from Study
  Country: US (occurrence: US)
  Receive Date: 20161020
  Receipt Date: 20170629
  Transmission Date: 20170830
  Serious: Yes (Death)
  Sender: FDA-Public Use
  Company Number: PHEH2016US026928

PATIENT
  Age: 84 Year
  Sex: Female
  Weight: 88.9 kg

DRUGS (2)
  1. SANDOSTATIN LAR DEPOT [Suspect]
     Active Substance: OCTREOTIDE ACETATE
     Indication: GASTROINTESTINAL HAEMORRHAGE
     Dosage: 5 ML, QW
     Route: 030
     Dates: start: 20160708
  2. SANDOSTATIN LAR DEPOT [Suspect]
     Active Substance: OCTREOTIDE ACETATE
     Dosage: 20 MG/KG, UNK
     Route: 065

REACTIONS (5)
  - Arrhythmia [Fatal]
  - Cardiac valve disease [Fatal]
  - Product use in unapproved indication [Unknown]
  - Cardiac arrest [Fatal]
  - Inappropriate schedule of drug administration [Unknown]

NARRATIVE: CASE EVENT DATE: 20160708
